FAERS Safety Report 6842114-2 (Version None)
Quarter: 2010Q3

REPORT INFORMATION
  Report Type: 
  Country: None (occurrence: None)
  Receive Date: 20100714
  Receipt Date: 20070721
  Transmission Date: 20110219
  Serious: No
  Sender: FDA-Public Use
  Company Number: US-PFIZER INC-2007061350

PATIENT
  Sex: Female
  Weight: 99.8 kg

DRUGS (2)
  1. CHANTIX [Suspect]
     Indication: SMOKING CESSATION THERAPY
     Dates: start: 20070708
  2. BENICAR HCT [Concomitant]

REACTIONS (2)
  - CHEST PAIN [None]
  - OROPHARYNGEAL PAIN [None]
